FAERS Safety Report 16620679 (Version 1)
Quarter: 2019Q3

REPORT INFORMATION
  Report Type: Spontaneous
  Country: US (occurrence: US)
  Receive Date: 20190723
  Receipt Date: 20190723
  Transmission Date: 20191004
  Serious: No
  Sender: FDA-Public Use
  Company Number: US-IGSA-SR10007866

PATIENT
  Age: 46 Year
  Sex: Female
  Weight: 97.5 kg

DRUGS (8)
  1. ADDERALL [Concomitant]
     Active Substance: AMPHETAMINE ASPARTATE\AMPHETAMINE SULFATE\DEXTROAMPHETAMINE SACCHARATE\DEXTROAMPHETAMINE SULFATE
     Route: 048
  2. NALTREXONE [Concomitant]
     Active Substance: NALTREXONE
     Route: 048
  3. LOSARTAN. [Concomitant]
     Active Substance: LOSARTAN
     Dosage: UNK UNK, QD
     Route: 048
  4. SINGULAIR [Concomitant]
     Active Substance: MONTELUKAST SODIUM
     Dosage: UNK UNK, QD
     Route: 048
  5. NORMAL SALINE [Concomitant]
     Active Substance: SODIUM CHLORIDE
     Dosage: 1000 ML, QD
     Dates: start: 20190209, end: 20190209
  6. METOPROLOL. [Concomitant]
     Active Substance: METOPROLOL
     Route: 048
  7. GAMUNEX-C [Suspect]
     Active Substance: HUMAN IMMUNOGLOBULIN G
     Indication: MORVAN SYNDROME
     Dosage: UNK
     Route: 042
     Dates: start: 20190209
  8. EDECRIN [Concomitant]
     Active Substance: ETHACRYNIC ACID
     Route: 048

REACTIONS (5)
  - Pain in extremity [Recovering/Resolving]
  - Vascular pain [Recovering/Resolving]
  - Swelling [Recovering/Resolving]
  - Oedema [Recovering/Resolving]
  - Medication error [Recovering/Resolving]

NARRATIVE: CASE EVENT DATE: 20190209
